FAERS Safety Report 4471996-7 (Version None)
Quarter: 2004Q4

REPORT INFORMATION
  Report Type: 
  Country: None (occurrence: None)
  Receive Date: 20041007
  Receipt Date: 20040924
  Transmission Date: 20050328
  Serious: Yes (Death, Other)
  Sender: FDA-Public Use
  Company Number: 2004066150

PATIENT
  Age: 49 Year
  Sex: Male

DRUGS (4)
  1. SERTRALINE HYDROCHLORIDE [Suspect]
     Indication: ILL-DEFINED DISORDER
  2. DIAZEPAM [Concomitant]
  3. TEMAZEPAM [Concomitant]
  4. MIRTAZAPINE [Concomitant]

REACTIONS (2)
  - COMPLETED SUICIDE [None]
  - HEPATIC CIRRHOSIS [None]
